FAERS Safety Report 23230513 (Version 2)
Quarter: 2023Q4

REPORT INFORMATION
  Report Type: Report from Study
  Country: DE (occurrence: DE)
  Receive Date: 20231127
  Receipt Date: 20231220
  Transmission Date: 20240109
  Serious: Yes (Hospitalization, Other)
  Sender: FDA-Public Use
  Company Number: DE-002147023-NVSC2021DE248940

PATIENT
  Sex: Female

DRUGS (10)
  1. ERELZI [Suspect]
     Active Substance: ETANERCEPT-SZZS
     Indication: Rheumatoid arthritis
     Dosage: 50 MG, QW (EVERY 7 DAYS)
     Route: 065
  2. Aquacort [Concomitant]
     Indication: Product used for unknown indication
     Route: 065
  3. Aquacort [Concomitant]
     Indication: Product used for unknown indication
     Route: 065
  4. ARTHROLOGES [Concomitant]
     Indication: Product used for unknown indication
     Route: 065
  5. CHOLECALCIFEROL [Concomitant]
     Active Substance: CHOLECALCIFEROL
     Indication: Product used for unknown indication
     Dosage: 20000 1 PER WEEK
     Route: 065
  6. FELODIPINE [Concomitant]
     Active Substance: FELODIPINE
     Indication: Product used for unknown indication
     Dosage: 5 1/D
     Route: 065
  7. HYDROCHLOROTHIAZIDE [Concomitant]
     Active Substance: HYDROCHLOROTHIAZIDE
     Indication: Product used for unknown indication
     Dosage: 25 1/D
     Route: 065
  8. IODINE [Concomitant]
     Active Substance: IODINE
     Indication: Product used for unknown indication
     Dosage: 100 1/D
     Route: 065
  9. PROLIA [Concomitant]
     Active Substance: DENOSUMAB
     Indication: Product used for unknown indication
     Dosage: EVERY 6/12
     Route: 065
     Dates: start: 201809
  10. VALSARTAN [Concomitant]
     Active Substance: VALSARTAN
     Indication: Product used for unknown indication
     Dosage: 160/25 2/D
     Route: 065

REACTIONS (7)
  - Nasal septum deviation [Recovered/Resolved]
  - Dyspnoea [Recovered/Resolved]
  - Lymphoma [Unknown]
  - Marginal zone lymphoma [Not Recovered/Not Resolved]
  - B-cell lymphoma stage I [Not Recovered/Not Resolved]
  - COVID-19 [Unknown]
  - Gastroenteritis [Unknown]

NARRATIVE: CASE EVENT DATE: 20210901
